FAERS Safety Report 4274145-3 (Version None)
Quarter: 2004Q1

REPORT INFORMATION
  Report Type: 
  Country: None (occurrence: None)
  Receive Date: 20040115
  Receipt Date: 20040105
  Transmission Date: 20041129
  Serious: Yes (Other)
  Sender: FDA-Public Use
  Company Number: FR-JNJFOC-20040100341

PATIENT
  Age: 68 Year
  Sex: Male

DRUGS (1)
  1. DOXORUBICIN HYDROCHLORIDE [Suspect]
     Indication: ANGIOSARCOMA
     Dosage: 7 CYCLES
     Dates: start: 20030306, end: 20030701

REACTIONS (3)
  - DERMATITIS BULLOUS [None]
  - NECROSIS [None]
  - TOXIC SKIN ERUPTION [None]
